FAERS Safety Report 4736574-0 (Version None)
Quarter: 2005Q3

REPORT INFORMATION
  Report Type: 
  Country: None (occurrence: None)
  Receive Date: 20050808
  Receipt Date: 20050727
  Transmission Date: 20060218
  Serious: Yes (Hospitalization)
  Sender: FDA-Public Use
  Company Number: US-BRISTOL-MYERS SQUIBB COMPANY-13053640

PATIENT
  Age: 82 Year
  Sex: Female
  Weight: 89 kg

DRUGS (6)
  1. PRAVACHOL [Suspect]
     Indication: BLOOD CHOLESTEROL INCREASED
     Route: 048
  2. PLAVIX [Concomitant]
  3. NORPACE [Concomitant]
  4. ATENOLOL [Concomitant]
  5. ASPIRIN [Concomitant]
  6. XALATAN [Concomitant]
     Dosage: ONE DROP BOTH EYES.
     Route: 031

REACTIONS (2)
  - GLOBAL AMNESIA [None]
  - MUSCULAR WEAKNESS [None]
